FAERS Safety Report 12290320 (Version 1)
Quarter: 2016Q2

REPORT INFORMATION
  Report Type: Spontaneous
  Country: US (occurrence: None)
  Receive Date: 20160420
  Receipt Date: 20160420
  Transmission Date: 20160815
  Serious: No
  Sender: FDA-Public Use
  Company Number: None

PATIENT
  Age: 60 Year
  Sex: Female

DRUGS (17)
  1. SUTENT [Suspect]
     Active Substance: SUNITINIB MALATE
     Indication: PANCREATIC CARCINOMA
     Dosage: 1 CAP QD 1 WK ON ?1 WK OFF PO??04 JUNE 2016 TO ONGOING??
     Route: 048
  2. OXYCODONE [Concomitant]
     Active Substance: OXYCODONE
  3. SUMATRIPTAN. [Concomitant]
     Active Substance: SUMATRIPTAN
  4. MULTI TAB [Concomitant]
  5. TORSEMIDE. [Concomitant]
     Active Substance: TORSEMIDE
  6. TYLENOL.COD [Concomitant]
  7. VITAMIN C [Concomitant]
     Active Substance: ASCORBIC ACID
  8. TRAMADOL. [Concomitant]
     Active Substance: TRAMADOL
  9. DRAMAMINE [Concomitant]
     Active Substance: DIMENHYDRINATE
  10. AMBIEN [Concomitant]
     Active Substance: ZOLPIDEM TARTRATE
  11. FOLIC ACID. [Concomitant]
     Active Substance: FOLIC ACID
  12. ZINC [Concomitant]
     Active Substance: ZINC\ZINC CHLORIDE
  13. KETOROLAC [Concomitant]
     Active Substance: KETOROLAC\KETOROLAC TROMETHAMINE
  14. CLARITIN [Concomitant]
     Active Substance: LORATADINE
  15. ALPRAZOLAM. [Concomitant]
     Active Substance: ALPRAZOLAM
  16. OMEPRAZOLE. [Concomitant]
     Active Substance: OMEPRAZOLE
  17. CYCLOBENZAPR [Concomitant]

REACTIONS (3)
  - Stomatitis [None]
  - Road traffic accident [None]
  - Headache [None]

NARRATIVE: CASE EVENT DATE: 201602
